FAERS Safety Report 6030912-7 (Version None)
Quarter: 2009Q1

REPORT INFORMATION
  Report Type: 
  Country: None (occurrence: None)
  Receive Date: 20090106
  Receipt Date: 20081229
  Transmission Date: 20090719
  Serious: Yes (Other)
  Sender: FDA-Public Use
  Company Number: 038847

PATIENT
  Sex: Female

DRUGS (1)
  1. PLAN B [Suspect]
     Indication: CONTRACEPTION
     Dosage: 1 TABLET, ORAL
     Route: 048
     Dates: start: 20081229

REACTIONS (3)
  - DIZZINESS [None]
  - NAUSEA [None]
  - SYNCOPE [None]
